FAERS Safety Report 5259090-9 (Version None)
Quarter: 2007Q1

REPORT INFORMATION
  Report Type: 
  Country: None (occurrence: None)
  Receive Date: 20070305
  Receipt Date: 20070220
  Transmission Date: 20070707
  Serious: Yes (Other)
  Sender: FDA-Public Use
  Company Number: OSCN-GE-0701S-0014

PATIENT
  Age: 50 Year
  Sex: Male

DRUGS (2)
  1. OMNISCAN [Suspect]
     Indication: ANGIOPATHY
     Dosage: SEE IMAGE
     Route: 042
     Dates: start: 20030102, end: 20030102
  2. OMNISCAN [Suspect]
     Indication: ANGIOPATHY
     Dosage: SEE IMAGE
     Route: 042
     Dates: start: 20030106, end: 20030106

REACTIONS (1)
  - NEPHROGENIC FIBROSING DERMOPATHY [None]
